FAERS Safety Report 5895581-5 (Version None)
Quarter: 2008Q3

REPORT INFORMATION
  Report Type: 
  Country: None (occurrence: None)
  Receive Date: 20080924
  Receipt Date: 20080201
  Transmission Date: 20090109
  Serious: Yes (Other)
  Sender: FDA-Public Use
  Company Number: US-ASTRAZENECA-2006UW08172

PATIENT
  Age: 696 Month
  Sex: Male
  Weight: 103.4 kg

DRUGS (3)
  1. SEROQUEL [Suspect]
     Indication: SCHIZOPHRENIA
     Route: 048
     Dates: start: 20001030, end: 20060410
  2. RISPERDAL [Concomitant]
     Dosage: 1 MG, 2 MG, 4 MG
     Dates: start: 20000101
  3. RISPERDAL [Concomitant]
     Dosage: 1 MG, 2 MG, 4 MG
     Dates: start: 20060101, end: 20070101

REACTIONS (4)
  - DELUSION [None]
  - DIABETES MELLITUS [None]
  - NIGHTMARE [None]
  - TARDIVE DYSKINESIA [None]
